FAERS Safety Report 11428539 (Version 1)
Quarter: 2015Q3

REPORT INFORMATION
  Report Type: Spontaneous
  Country: US (occurrence: US)
  Receive Date: 20150828
  Receipt Date: 20150828
  Transmission Date: 20151125
  Serious: No
  Sender: FDA-Public Use
  Company Number: US-ROCHE-1254495

PATIENT
  Sex: Female

DRUGS (4)
  1. INCIVEK [Suspect]
     Active Substance: TELAPREVIR
     Route: 065
  2. INCIVEK [Suspect]
     Active Substance: TELAPREVIR
     Indication: CHRONIC HEPATITIS C
     Route: 065
     Dates: start: 20130719
  3. RIBAVIRIN. [Suspect]
     Active Substance: RIBAVIRIN
     Indication: CHRONIC HEPATITIS C
     Dosage: 1200MG IN DAILY DIVIDED DOSE
     Route: 048
     Dates: start: 20130719
  4. PEGASYS [Suspect]
     Active Substance: PEGINTERFERON ALFA-2A
     Indication: CHRONIC HEPATITIS C
     Route: 058
     Dates: start: 20130719

REACTIONS (5)
  - Injection site haemorrhage [Unknown]
  - Injection site pain [Unknown]
  - Injection site reaction [Unknown]
  - Wrong technique in product usage process [Unknown]
  - Injection site pruritus [Unknown]
